FAERS Safety Report 12364329 (Version 1)
Quarter: 2016Q2

REPORT INFORMATION
  Report Type: Spontaneous
  Country: US (occurrence: None)
  Receive Date: 20160512
  Receipt Date: 20160512
  Transmission Date: 20160815
  Serious: No
  Sender: FDA-Public Use
  Company Number: None

PATIENT
  Age: 42 Year
  Sex: Female
  Weight: 70.31 kg

DRUGS (2)
  1. KEFLEX [Suspect]
     Active Substance: CEPHALEXIN
     Indication: PRODUCT USED FOR UNKNOWN INDICATION
     Route: 048
  2. DOXYCYCLINE HTC, 500MG [Suspect]
     Active Substance: DOXYCYCLINE HYCLATE

REACTIONS (9)
  - Arthralgia [None]
  - Hepatic enzyme increased [None]
  - Acne cystic [None]
  - Chest pain [None]
  - Drug ineffective [None]
  - Dizziness [None]
  - Syncope [None]
  - Pain [None]
  - Antinuclear antibody positive [None]
